FAERS Safety Report 12398683 (Version 3)
Quarter: 2016Q3

REPORT INFORMATION
  Report Type: Spontaneous
  Country: US (occurrence: US)
  Receive Date: 20160524
  Receipt Date: 20160902
  Transmission Date: 20161109
  Serious: Yes (Hospitalization, Other)
  Sender: FDA-Public Use
  Company Number: US-PFIZER INC-2016270476

PATIENT
  Age: 62 Year
  Sex: Female

DRUGS (3)
  1. MORPHINE [Concomitant]
     Active Substance: MORPHINE
     Dosage: UNK
  2. OXY [Concomitant]
     Active Substance: BENZOYL PEROXIDE
     Dosage: UNK
  3. PREMARIN [Suspect]
     Active Substance: ESTROGENS, CONJUGATED
     Indication: HORMONE REPLACEMENT THERAPY
     Dosage: 1 DF, DAILY
     Dates: start: 1988

REACTIONS (17)
  - Apparent death [Not Recovered/Not Resolved]
  - Malaise [Unknown]
  - Suicidal ideation [Recovered/Resolved]
  - Renal neoplasm [Not Recovered/Not Resolved]
  - Haemorrhage [Unknown]
  - Lung disorder [Unknown]
  - Memory impairment [Unknown]
  - Coma [Not Recovered/Not Resolved]
  - Skeletal injury [Unknown]
  - Deafness [Unknown]
  - Road traffic accident [Unknown]
  - Liver disorder [Unknown]
  - Hepatic neoplasm [Not Recovered/Not Resolved]
  - Weight increased [Unknown]
  - Throat tightness [Unknown]
  - Eye haemorrhage [Unknown]
  - Pain [Unknown]

NARRATIVE: CASE EVENT DATE: 1988
